FAERS Safety Report 4674300-4 (Version None)
Quarter: 2005Q2

REPORT INFORMATION
  Report Type: 
  Country: None (occurrence: None)
  Receive Date: 20050526
  Receipt Date: 20050328
  Transmission Date: 20051028
  Serious: No
  Sender: FDA-Public Use
  Company Number: JP-BOEHRINGER INGELHEIM PHARMACEUTICALS, INC.-2005-BP-05081NB

PATIENT
  Sex: Male
  Weight: 76 kg

DRUGS (2)
  1. MICARDIS [Suspect]
     Indication: ESSENTIAL HYPERTENSION
     Route: 048
     Dates: start: 20040131
  2. TANATORIL [Concomitant]
     Indication: ESSENTIAL HYPERTENSION
     Route: 048
     Dates: start: 20041016

REACTIONS (1)
  - HYPOCHOLESTEROLAEMIA [None]
